FAERS Safety Report 15306521 (Version 2)
Quarter: 2018Q3

REPORT INFORMATION
  Report Type: Report from Study
  Country: US (occurrence: US)
  Receive Date: 20180822
  Receipt Date: 20180906
  Transmission Date: 20181010
  Serious: No
  Sender: FDA-Public Use
  Company Number: PHEH2018US034105

PATIENT
  Age: 52 Year
  Sex: Female
  Weight: 77.98 kg

DRUGS (1)
  1. GILENYA [Suspect]
     Active Substance: FINGOLIMOD HYDROCHLORIDE
     Indication: MULTIPLE SCLEROSIS
     Dosage: 0.5 MG, QD
     Route: 048
     Dates: start: 20180807

REACTIONS (10)
  - Nausea [Recovering/Resolving]
  - Hot flush [Recovered/Resolved]
  - Gastroenteritis viral [Recovering/Resolving]
  - Back pain [Unknown]
  - Headache [Recovered/Resolved]
  - Swelling [Recovering/Resolving]
  - Diarrhoea [Recovering/Resolving]
  - Somnolence [Unknown]
  - Abdominal pain upper [Recovered/Resolved]
  - Abdominal pain upper [Recovering/Resolving]

NARRATIVE: CASE EVENT DATE: 20180807
